FAERS Safety Report 20485222 (Version 3)
Quarter: 2022Q1

REPORT INFORMATION
  Report Type: Report from Study
  Country: CN (occurrence: CN)
  Receive Date: 20220217
  Receipt Date: 20220228
  Transmission Date: 20220424
  Serious: Yes (Death, Life-Threatening, Hospitalization)
  Sender: FDA-Public Use
  Company Number: CN-PFIZER INC-202200259770

PATIENT
  Age: 24 Year
  Sex: Male
  Weight: 57 kg

DRUGS (16)
  1. CYTARABINE [Suspect]
     Active Substance: CYTARABINE
     Indication: Acute myeloid leukaemia
     Dosage: 1638 MG, 1X/DAY, REGIMEN #1
     Route: 041
     Dates: start: 20220108, end: 20220112
  2. INVESTIGATIONAL PRODUCT [Suspect]
     Active Substance: INVESTIGATIONAL PRODUCT
     Indication: Acute myeloid leukaemia
     Dosage: FIRST DOSE, 1X/DAY
     Route: 041
     Dates: start: 20220107, end: 20220107
  3. INVESTIGATIONAL PRODUCT [Suspect]
     Active Substance: INVESTIGATIONAL PRODUCT
     Dosage: D2 TO D6, 2X/DAY
     Route: 041
     Dates: start: 20220108, end: 20220112
  4. INVESTIGATIONAL PRODUCT [Suspect]
     Active Substance: INVESTIGATIONAL PRODUCT
     Dosage: D7 TO D8, 2X/DAY
     Route: 041
     Dates: start: 20220113, end: 20220114
  5. MITOXANTRONE [Suspect]
     Active Substance: MITOXANTRONE HYDROCHLORIDE
     Indication: Acute myeloid leukaemia
     Dosage: 9.8 MG, 1X/DAY (25/12.5 MG/L)
     Route: 041
     Dates: start: 20220108, end: 20220112
  6. ETOPOSIDE [Suspect]
     Active Substance: ETOPOSIDE
     Indication: Acute myeloid leukaemia
     Dosage: 8.2 ML, 1X/DAY (0.1/5 G/L)
     Route: 041
     Dates: start: 20220108, end: 20220110
  7. THROMBOPOIETIN [Concomitant]
     Active Substance: THROMBOPOIETIN
     Dosage: UNK
     Dates: start: 20220111, end: 20220203
  8. POTASSIUM CHLORIDE [Concomitant]
     Active Substance: POTASSIUM CHLORIDE
     Dosage: UNK
     Dates: start: 20220107, end: 20220202
  9. ILAPRAZOLE [Concomitant]
     Active Substance: ILAPRAZOLE
     Dosage: POWDER (EXCEPT [DPO]
     Dates: start: 20220113, end: 20220203
  10. FILGRASTIM [Concomitant]
     Active Substance: FILGRASTIM
     Dosage: UNK
     Dates: start: 20220114, end: 20220203
  11. GRANULOCYTE-MACROPHAGE COLONY-STIMULATING FACTOR [Concomitant]
     Active Substance: GRANULOCYTE-MACROPHAGE COLONY-STIMULATING FACTOR
     Dosage: UNK
     Dates: start: 20220114, end: 20220203
  12. EPOETIN BETA RECOMBINANT [Concomitant]
     Dosage: UNK
     Dates: start: 20220114, end: 20220203
  13. MEROPENEM [Concomitant]
     Active Substance: MEROPENEM
     Dosage: UNK
     Dates: start: 20220110, end: 20220203
  14. VORICONAZOLE [Concomitant]
     Active Substance: VORICONAZOLE
     Dosage: POWDER EXCEPT [DPO]
     Dates: start: 20220114
  15. ESTAZOLAM [Concomitant]
     Active Substance: ESTAZOLAM
     Dosage: UNK
     Dates: start: 20220127
  16. TEICOPLANIN [Concomitant]
     Active Substance: TEICOPLANIN
     Dosage: UNK
     Dates: start: 20220128, end: 20220203

REACTIONS (2)
  - Septic shock [Fatal]
  - Eye haemorrhage [Not Recovered/Not Resolved]

NARRATIVE: CASE EVENT DATE: 20220201
